FAERS Safety Report 10193585 (Version 2)
Quarter: 2014Q2

REPORT INFORMATION
  Report Type: Spontaneous
  Country: US (occurrence: US)
  Receive Date: 20140524
  Receipt Date: 20140530
  Transmission Date: 20141212
  Serious: Yes (Other)
  Sender: FDA-Public Use
  Company Number: US-SA-2013SA125690

PATIENT
  Age: 75 Year
  Sex: Female

DRUGS (4)
  1. LANTUS SOLOSTAR [Suspect]
     Indication: TYPE 2 DIABETES MELLITUS
     Dosage: PATIENT TAKES 14 UNITS AT MORNING AND 6 UNITS AT EVENINIG, OVER 5 YEARS
     Route: 051
  2. LANTUS SOLOSTAR [Suspect]
     Indication: TYPE 2 DIABETES MELLITUS
     Dosage: PATIENT TAKES 14 UNITS AT MORNING AND 6 UNITS AT EVENINIG, OVER 5 YEARS
     Route: 051
  3. LANTUS SOLOSTAR [Suspect]
     Indication: TYPE 2 DIABETES MELLITUS
     Dosage: 14 U AM AND 4 U PM
     Route: 051
  4. SOLOSTAR [Concomitant]
     Indication: TYPE 2 DIABETES MELLITUS

REACTIONS (3)
  - Brain tumour operation [Unknown]
  - Visual impairment [Unknown]
  - Drug administration error [Unknown]
